FAERS Safety Report 23432801 (Version 1)
Quarter: 2024Q1

REPORT INFORMATION
  Report Type: Spontaneous
  Country: US (occurrence: US)
  Receive Date: 20240123
  Receipt Date: 20240123
  Transmission Date: 20240410
  Serious: No
  Sender: FDA-Public Use
  Company Number: US-PFIZER INC-PV202400008074

PATIENT

DRUGS (1)
  1. TAVABOROLE [Suspect]
     Active Substance: TAVABOROLE
     Dosage: UNK

REACTIONS (1)
  - Hypersensitivity [Unknown]
